FAERS Safety Report 15266377 (Version 1)
Quarter: 2018Q3

REPORT INFORMATION
  Report Type: Spontaneous
  Country: US (occurrence: US)
  Receive Date: 20180810
  Receipt Date: 20180810
  Transmission Date: 20181010
  Serious: Yes (Disabling, Other)
  Sender: FDA-Public Use
  Company Number: US-TEVA-2018-US-940655

PATIENT
  Age: 50 Year
  Sex: Female

DRUGS (1)
  1. LISINOPRIL AND HYDROCHLOROTHIAZIDE [Suspect]
     Active Substance: HYDROCHLOROTHIAZIDE\LISINOPRIL
     Indication: FLUID RETENTION
     Dosage: DOSE STRENGTH:  20/12.5 MG

REACTIONS (8)
  - Disability [Unknown]
  - Dry mouth [Unknown]
  - Fibromyalgia [Unknown]
  - Weight increased [Unknown]
  - Tooth fracture [Unknown]
  - Diabetes mellitus [Unknown]
  - Asthma [Unknown]
  - Chronic fatigue syndrome [Unknown]
